FAERS Safety Report 7581010-2 (Version None)
Quarter: 2011Q2

REPORT INFORMATION
  Report Type: 
  Country: None (occurrence: None)
  Receive Date: 20110629
  Receipt Date: 20110620
  Transmission Date: 20111010
  Serious: Yes (Hospitalization)
  Sender: FDA-Public Use
  Company Number: US-AMGEN-USACT2011031454

PATIENT
  Age: 32 Year

DRUGS (6)
  1. FILGRASTIM [Suspect]
     Indication: BREAST CANCER
     Dosage: UNK
     Route: 042
     Dates: start: 20101008, end: 20101213
  2. CYCLOPHOSPHAMIDE [Concomitant]
     Indication: BREAST CANCER
     Dosage: 600 MG/M2, UNK
     Route: 042
     Dates: start: 20101018, end: 20101213
  3. PACLITAXEL [Concomitant]
     Indication: BREAST CANCER
     Dosage: 80 MG/M2, UNK
     Route: 042
     Dates: start: 20101018, end: 20101213
  4. BEVACIZUMAB [Concomitant]
     Indication: BREAST CANCER
     Dosage: UNK
     Route: 042
     Dates: start: 20101008, end: 20101213
  5. PEGFILGRASTIM [Suspect]
     Indication: BREAST CANCER
     Dosage: UNK
     Route: 058
     Dates: start: 20101018, end: 20101213
  6. DOXORUBICIN HCL [Concomitant]
     Dosage: 60 MG/M2, UNK
     Route: 042
     Dates: start: 20101018, end: 20101213

REACTIONS (2)
  - COUGH [None]
  - PYREXIA [None]
